FAERS Safety Report 12794894 (Version 2)
Quarter: 2017Q2

REPORT INFORMATION
  Report Type: Spontaneous
  Country: US (occurrence: US)
  Receive Date: 20160929
  Receipt Date: 20170623
  Transmission Date: 20170830
  Serious: No
  Sender: FDA-Public Use
  Company Number: US-BAUSCH-BL-2016-020399

PATIENT
  Age: 68 Year
  Sex: Female
  Weight: 81.27 kg

DRUGS (12)
  1. LEXAPRO [Concomitant]
     Active Substance: ESCITALOPRAM OXALATE
     Indication: DEPRESSION
  2. RESTASIS [Concomitant]
     Active Substance: CYCLOSPORINE
     Indication: DRY EYE
  3. BIOTIN [Concomitant]
     Active Substance: BIOTIN
     Indication: SUPPLEMENTATION THERAPY
  4. HYDRO EYE [Concomitant]
     Indication: DRY EYE
  5. HYZAAR [Concomitant]
     Active Substance: HYDROCHLOROTHIAZIDE\LOSARTAN POTASSIUM
     Indication: HYPERTENSION
  6. TOPROL XL [Concomitant]
     Active Substance: METOPROLOL SUCCINATE
     Indication: HYPERTENSION
  7. SYNTHROID [Concomitant]
     Active Substance: LEVOTHYROXINE SODIUM
     Indication: HYPOTHYROIDISM
  8. CYTOMEL [Concomitant]
     Active Substance: LIOTHYRONINE SODIUM
     Indication: HYPOTHYROIDISM
  9. VITAMIN B12 [Concomitant]
     Active Substance: CYANOCOBALAMIN
     Indication: SUPPLEMENTATION THERAPY
  10. FOCUS [Concomitant]
     Indication: MACULAR DEGENERATION
  11. JUBLIA [Suspect]
     Active Substance: EFINACONAZOLE
     Indication: ONYCHOMYCOSIS
     Route: 061
  12. CRESTOR [Concomitant]
     Active Substance: ROSUVASTATIN CALCIUM
     Indication: HYPERLIPIDAEMIA

REACTIONS (1)
  - Drug ineffective [Unknown]
